FAERS Safety Report 9082531 (Version 1)
Quarter: 2013Q1

REPORT INFORMATION
  Report Type: Spontaneous
  Country: FR (occurrence: FR)
  Receive Date: 20130131
  Receipt Date: 20130131
  Transmission Date: 20140127
  Serious: Yes (Hospitalization)
  Sender: FDA-Public Use
  Company Number: FR-009507513-1301FRA010765

PATIENT
  Sex: Male

DRUGS (1)
  1. ADROVANCE [Suspect]
     Dosage: UNK
     Route: 048

REACTIONS (2)
  - Extrasystoles [Recovered/Resolved]
  - Off label use [Unknown]
